FAERS Safety Report 22346057 (Version 1)
Quarter: 2023Q2

REPORT INFORMATION
  Report Type: Spontaneous
  Country: US (occurrence: None)
  Receive Date: 20230519
  Receipt Date: 20230519
  Transmission Date: 20230721
  Serious: Yes (Hospitalization)
  Sender: FDA-Public Use
  Company Number: None

PATIENT
  Sex: Male

DRUGS (2)
  1. MYCOPHENOLIC ACID [Suspect]
     Active Substance: MYCOPHENOLIC ACID
     Indication: Systemic scleroderma
     Dosage: FREQUENCY : TWICE A DAY;?
     Route: 048
     Dates: start: 202106
  2. SILDENAFIL [Suspect]
     Active Substance: SILDENAFIL

REACTIONS (1)
  - Pericardial effusion [None]
